FAERS Safety Report 8926607 (Version 1)
Quarter: 2012Q4

REPORT INFORMATION
  Report Type: 
  Country: US (occurrence: US)
  Receive Date: 20121127
  Receipt Date: 20121127
  Transmission Date: 20130627
  Serious: Yes (Death, Hospitalization, Other)
  Sender: FDA-Public Use
  Company Number: PHHY2012US108277

PATIENT
  Age: 22 Month
  Sex: Female

DRUGS (1)
  1. VANCOMYCIN [Suspect]
     Indication: PERICARDITIS
     Route: 042

REACTIONS (17)
  - Cardiac failure [Fatal]
  - Myocarditis [Fatal]
  - Drug reaction with eosinophilia and systemic symptoms [Fatal]
  - Pyrexia [Fatal]
  - Rash [Fatal]
  - Conjunctival hyperaemia [Fatal]
  - Hepatomegaly [Fatal]
  - Hypoalbuminaemia [Fatal]
  - Lymphadenopathy [Fatal]
  - Dermatitis exfoliative [Fatal]
  - Leukocytosis [Fatal]
  - Lymphocytosis [Fatal]
  - Eosinophilia [Fatal]
  - Thrombocytopenia [Fatal]
  - Hypotension [Fatal]
  - Pulmonary oedema [Fatal]
  - Cardio-respiratory arrest [Unknown]
